FAERS Safety Report 22134043 (Version 1)
Quarter: 2023Q1

REPORT INFORMATION
  Report Type: Spontaneous
  Country: CN (occurrence: CN)
  Receive Date: 20230324
  Receipt Date: 20230324
  Transmission Date: 20230418
  Serious: Yes (Other)
  Sender: FDA-Public Use
  Company Number: CN-002147023-NVSC2022CN118447

PATIENT
  Age: 63 Year
  Sex: Female

DRUGS (2)
  1. TRILEPTAL [Suspect]
     Active Substance: OXCARBAZEPINE
     Indication: Muscle spasms
     Dosage: 0.3 MG, BID
     Route: 045
     Dates: start: 20190923, end: 20191014
  2. VALPROATE SODIUM [Suspect]
     Active Substance: VALPROATE SODIUM
     Indication: Epilepsy
     Dosage: 12.5 ML, BID
     Route: 045
     Dates: start: 20190927, end: 20191014

REACTIONS (3)
  - Coma [Unknown]
  - Rash [Recovering/Resolving]
  - Dermatitis allergic [Recovering/Resolving]

NARRATIVE: CASE EVENT DATE: 20191011
